FAERS Safety Report 11852895 (Version 2)
Quarter: 2016Q1

REPORT INFORMATION
  Report Type: Spontaneous
  Country: US (occurrence: US)
  Receive Date: 20151218
  Receipt Date: 20160307
  Transmission Date: 20160526
  Serious: No
  Sender: FDA-Public Use
  Company Number: US-CELGENEUS-USA-2015117164

PATIENT
  Age: 66 Year
  Sex: Female

DRUGS (1)
  1. OTEZLA [Suspect]
     Active Substance: APREMILAST
     Indication: PRODUCT USED FOR UNKNOWN INDICATION
     Dosage: 60 MILLIGRAM
     Route: 048
     Dates: start: 20150828, end: 20151112

REACTIONS (4)
  - Abnormal dreams [Recovered/Resolved]
  - Chronic obstructive pulmonary disease [Recovered/Resolved]
  - Headache [Recovered/Resolved]
  - Insomnia [Recovered/Resolved]

NARRATIVE: CASE EVENT DATE: 20150925
